FAERS Safety Report 9664538 (Version 1)
Quarter: 2013Q4

REPORT INFORMATION
  Report Type: Spontaneous
  Country: CN (occurrence: CN)
  Receive Date: 20131101
  Receipt Date: 20131101
  Transmission Date: 20140711
  Serious: Yes (Other)
  Sender: FDA-Public Use
  Company Number: PHHY2013CN123728

PATIENT
  Age: 33 Year
  Sex: Male

DRUGS (1)
  1. DICLOFENAC [Suspect]
     Dosage: 75 MG, BID
     Route: 048
     Dates: start: 20110629, end: 20110708

REACTIONS (5)
  - Bone marrow failure [Recovering/Resolving]
  - Mouth ulceration [Recovering/Resolving]
  - Oral pain [Unknown]
  - Platelet count decreased [Recovering/Resolving]
  - White blood cell count decreased [Recovering/Resolving]
